FAERS Safety Report 10773657 (Version 2)
Quarter: 2016Q1

REPORT INFORMATION
  Report Type: Other
  Country: US (occurrence: US)
  Receive Date: 20150208
  Receipt Date: 20160219
  Transmission Date: 20160525
  Serious: Yes (Hospitalization)
  Sender: FDA-Public Use
  Company Number: US-ACORDA-ACO_107672_2014

PATIENT
  Age: 51 Year
  Sex: Female

DRUGS (1)
  1. AMPYRA [Suspect]
     Active Substance: DALFAMPRIDINE
     Indication: MULTIPLE SCLEROSIS
     Dosage: 10 MG, Q 12 HRS
     Route: 048
     Dates: start: 20140822

REACTIONS (6)
  - Palpitations [Unknown]
  - Drug dose omission [Unknown]
  - Fall [Unknown]
  - Head injury [Unknown]
  - Headache [Unknown]
  - Memory impairment [Unknown]

NARRATIVE: CASE EVENT DATE: 201411
